FAERS Safety Report 5238052-1 (Version None)
Quarter: 2007Q1

REPORT INFORMATION
  Report Type: 
  Country: None (occurrence: None)
  Receive Date: 20070215
  Receipt Date: 20070207
  Transmission Date: 20070707
  Serious: Yes (Life-Threatening, Hospitalization)
  Sender: FDA-Public Use
  Company Number: SE-JNJFOC-20061203815

PATIENT
  Age: 77 Year
  Sex: Male

DRUGS (8)
  1. REMICADE [Suspect]
     Indication: RHEUMATOID ARTHRITIS
     Route: 042
  2. METHOTREXATE OMNIA [Suspect]
     Indication: RHEUMATOID ARTHRITIS
     Route: 048
  3. FOLACIN [Concomitant]
     Route: 065
  4. FENANTOIN [Concomitant]
     Route: 065
  5. ORUDIS [Concomitant]
     Route: 065
  6. CALCICHEW-D3 [Concomitant]
     Route: 065
  7. TRIOBE [Concomitant]
     Route: 065
  8. PANTOC [Concomitant]
     Route: 065

REACTIONS (1)
  - PNEUMOCYSTIS JIROVECI INFECTION [None]
